FAERS Safety Report 4811608-3 (Version None)
Quarter: 2005Q4

REPORT INFORMATION
  Report Type: 
  Country: None (occurrence: None)
  Receive Date: 20051027
  Receipt Date: 20050722
  Transmission Date: 20060501
  Serious: Yes (Hospitalization, Disabling)
  Sender: FDA-Public Use
  Company Number: US-MERCK-0507USA03820

PATIENT
  Age: 67 Year
  Sex: Male
  Weight: 84 kg

DRUGS (9)
  1. VIOXX [Suspect]
     Indication: ARTHRITIS
     Route: 048
     Dates: start: 20010829, end: 20041001
  2. ACCUPRIL [Concomitant]
     Indication: HYPERTENSION
     Route: 065
     Dates: start: 20030918, end: 20031201
  3. ACCUPRIL [Concomitant]
     Route: 065
     Dates: start: 20040607
  4. ACCUPRIL [Concomitant]
     Route: 065
     Dates: start: 20020413, end: 20021001
  5. ALLEGRA [Concomitant]
     Indication: HYPERSENSITIVITY
     Route: 065
  6. ALPRAZOLAM [Concomitant]
     Indication: ANXIETY
     Route: 065
  7. HYDROCHLOROTHIAZIDE [Concomitant]
     Indication: HYPERTENSION
     Route: 065
     Dates: start: 20031202, end: 20040208
  8. HYDROCHLOROTHIAZIDE [Concomitant]
     Route: 065
     Dates: start: 20040209
  9. VIAGRA [Concomitant]
     Indication: ERECTILE DYSFUNCTION
     Route: 065

REACTIONS (4)
  - BENIGN PROSTATIC HYPERPLASIA [None]
  - BLOOD CHOLESTEROL INCREASED [None]
  - CEREBROVASCULAR ACCIDENT [None]
  - ROTATOR CUFF SYNDROME [None]
